FAERS Safety Report 10024467 (Version 2)
Quarter: 2014Q1

REPORT INFORMATION
  Report Type: Spontaneous
  Country: CL (occurrence: CL)
  Receive Date: 20140320
  Receipt Date: 20140320
  Transmission Date: 20141002
  Serious: Yes (Other)
  Sender: FDA-Public Use
  Company Number: CL-PFIZER INC-2014071274

PATIENT
  Age: 35 Year
  Sex: Female

DRUGS (3)
  1. XALATAN [Suspect]
     Indication: GLAUCOMA
     Dosage: 1 DROP, 1X/DAY
     Route: 047
     Dates: start: 2012
  2. ZYPREXA [Concomitant]
     Dosage: UNK
     Dates: start: 2003
  3. OMEPRAZOLE [Concomitant]
     Dosage: UNK

REACTIONS (2)
  - Visual impairment [Unknown]
  - Pain [Not Recovered/Not Resolved]
